FAERS Safety Report 5486756-8 (Version None)
Quarter: 2007Q4

REPORT INFORMATION
  Report Type: 
  Country: None (occurrence: None)
  Receive Date: 20071016
  Receipt Date: 20071012
  Transmission Date: 20080405
  Serious: Yes (Other)
  Sender: FDA-Public Use
  Company Number: A0687567A

PATIENT
  Age: 10 Year
  Sex: Male

DRUGS (2)
  1. LAMICTAL [Suspect]
     Indication: EPILEPSY
     Dosage: 25MG PER DAY
     Route: 048
     Dates: start: 20071002
  2. NO CONCURRENT MEDICATION [Concomitant]

REACTIONS (6)
  - CLUMSINESS [None]
  - HAEMATOCHEZIA [None]
  - HEADACHE [None]
  - INCONTINENCE [None]
  - LIP PAIN [None]
  - LIP SWELLING [None]
